FAERS Safety Report 4584804-0 (Version None)
Quarter: 2005Q1

REPORT INFORMATION
  Report Type: 
  Country: None (occurrence: None)
  Receive Date: 20050217
  Receipt Date: 20050211
  Transmission Date: 20050727
  Serious: Yes (Death, Other)
  Sender: FDA-Public Use
  Company Number: PHEH2005US01970

PATIENT
  Age: 50 Year
  Sex: Male

DRUGS (11)
  1. ZOFRAN [Concomitant]
     Indication: VOMITING
     Dates: start: 20050115
  2. LANTUS [Concomitant]
     Indication: DIABETES MELLITUS
  3. NOVOLOG [Concomitant]
     Indication: DIABETES MELLITUS
  4. ZELNORM [Suspect]
     Indication: FLATULENCE
     Dosage: 6 MG, BID
     Dates: start: 20050115
  5. METOPROLOL [Concomitant]
  6. ACETYLSALICYLATE [Concomitant]
  7. OMNICEF [Concomitant]
  8. PLAVIX [Concomitant]
  9. LEVAQUIN [Concomitant]
  10. XANAX [Concomitant]
  11. SYNTHROID [Concomitant]

REACTIONS (8)
  - ASTHENIA [None]
  - CARDIO-RESPIRATORY ARREST [None]
  - DIABETES MELLITUS INADEQUATE CONTROL [None]
  - DIZZINESS [None]
  - HAEMODIALYSIS [None]
  - RECTAL HAEMORRHAGE [None]
  - RENAL FAILURE CHRONIC [None]
  - RESPIRATORY ARREST [None]
